FAERS Safety Report 9912588 (Version 2)
Quarter: 2014Q2

REPORT INFORMATION
  Report Type: Spontaneous
  Country: US (occurrence: None)
  Receive Date: 20140212
  Receipt Date: 20140616
  Transmission Date: 20141212
  Serious: No
  Sender: FDA-Public Use
  Company Number: 2014-US-001276

PATIENT
  Age: 38 Year
  Sex: Female

DRUGS (1)
  1. XYREM [Suspect]
     Indication: SLEEP DISORDER
     Dosage: 2.25 G, BID, ORAL
     Route: 048
     Dates: start: 200605

REACTIONS (3)
  - Surgery [None]
  - Tonsillectomy [None]
  - Off label use [None]
